FAERS Safety Report 5811795-4 (Version None)
Quarter: 2008Q3

REPORT INFORMATION
  Report Type: 
  Country: None (occurrence: None)
  Receive Date: 20080715
  Receipt Date: 20080715
  Transmission Date: 20090109
  Serious: No
  Sender: FDA-Public Use
  Company Number: None

PATIENT
  Sex: Female

DRUGS (1)
  1. AVONEX [Suspect]
     Dosage: 30MCG WEEKLY IM
     Route: 030

REACTIONS (4)
  - ASTHENIA [None]
  - FATIGUE [None]
  - MALAISE [None]
  - PAIN [None]
